FAERS Safety Report 18336260 (Version 1)
Quarter: 2020Q4

REPORT INFORMATION
  Report Type: Spontaneous
  Country: US (occurrence: US)
  Receive Date: 20201001
  Receipt Date: 20201001
  Transmission Date: 20210113
  Serious: Yes (Other)
  Sender: FDA-Public Use
  Company Number: US-ASTRAZENECA-2020SF25107

PATIENT

DRUGS (1)
  1. CALQUENCE [Suspect]
     Active Substance: ACALABRUTINIB
     Indication: NON-HODGKIN^S LYMPHOMA
     Route: 048
     Dates: end: 20200901

REACTIONS (5)
  - Obstructive airways disorder [Unknown]
  - Off label use [Unknown]
  - Neck mass [Unknown]
  - Dysphagia [Unknown]
  - Neutropenia [Unknown]
